FAERS Safety Report 4623879-7 (Version None)
Quarter: 2005Q1

REPORT INFORMATION
  Report Type: 
  Country: None (occurrence: None)
  Receive Date: 20050331
  Receipt Date: 20050222
  Transmission Date: 20050727
  Serious: Yes (Hospitalization)
  Sender: FDA-Public Use
  Company Number: JP-MERCK-0502USA03346

PATIENT
  Age: 82 Year
  Sex: Female

DRUGS (8)
  1. PEPCID [Suspect]
     Route: 048
     Dates: start: 20050101, end: 20050201
  2. MICARDIS [Suspect]
     Route: 048
     Dates: start: 20050101, end: 20050201
  3. ASPIRIN [Suspect]
     Route: 065
     Dates: start: 20050101, end: 20050201
  4. LIPITOR [Suspect]
     Route: 065
     Dates: start: 20050101, end: 20050201
  5. INHIBACE [Suspect]
     Route: 065
     Dates: start: 20050101
  6. LASIX [Concomitant]
     Route: 048
     Dates: end: 20050101
  7. LASIX [Concomitant]
     Route: 048
     Dates: start: 20050101
  8. RENIVACE [Concomitant]
     Route: 048
     Dates: end: 20050101

REACTIONS (2)
  - BLOOD CREATININE INCREASED [None]
  - EOSINOPHIL COUNT INCREASED [None]
